FAERS Safety Report 15588747 (Version 2)
Quarter: 2021Q3

REPORT INFORMATION
  Report Type: Report from Study
  Country: None (occurrence: US)
  Receive Date: 20181106
  Receipt Date: 20210916
  Transmission Date: 20211014
  Serious: Yes (Other)
  Sender: FDA-Public Use
  Company Number: US-ABBVIE-18K-163-2248041-00

PATIENT
  Sex: Female

DRUGS (1)
  1. HUMIRA [Suspect]
     Active Substance: ADALIMUMAB
     Indication: CROHN^S DISEASE
     Route: 058

REACTIONS (5)
  - Pyoderma gangrenosum [Unknown]
  - Hernia [Recovering/Resolving]
  - Pneumonia [Unknown]
  - Pain [Recovering/Resolving]
  - Diabetic coma [Not Recovered/Not Resolved]
